FAERS Safety Report 6592340-5 (Version None)
Quarter: 2010Q1

REPORT INFORMATION
  Report Type: 
  Country: None (occurrence: None)
  Receive Date: 20100221
  Receipt Date: 20090930
  Transmission Date: 20100710
  Serious: No
  Sender: FDA-Public Use
  Company Number: US-ALLERGAN-0913652US

PATIENT
  Age: 45 Year
  Sex: Female

DRUGS (3)
  1. BOTOX COSMETIC [Suspect]
     Indication: SKIN WRINKLING
     Dosage: 14 UNITS, SINGLE
     Dates: start: 20090211, end: 20090211
  2. BOTOX COSMETIC [Suspect]
     Dosage: 14 UNITS, SINGLE
     Dates: start: 20090601, end: 20090601
  3. AUGMENTIN [Concomitant]

REACTIONS (2)
  - CONTUSION [None]
  - HEADACHE [None]
